FAERS Safety Report 11241285 (Version 4)
Quarter: 2015Q3

REPORT INFORMATION
  Report Type: Report from Study
  Country: JP (occurrence: JP)
  Receive Date: 20150706
  Receipt Date: 20150925
  Transmission Date: 20151125
  Serious: Yes (Other)
  Sender: FDA-Public Use
  Company Number: JP-UCBSA-2015021545

PATIENT
  Age: 76 Year
  Sex: Male
  Weight: 73.5 kg

DRUGS (1)
  1. CERTOLIZUMAB PEGOL RA [Suspect]
     Active Substance: CERTOLIZUMAB PEGOL
     Indication: RHEUMATOID ARTHRITIS
     Dosage: 200 MG, UNK
     Route: 058
     Dates: start: 20140609, end: 20140707

REACTIONS (1)
  - Oropharyngeal neoplasm [Unknown]

NARRATIVE: CASE EVENT DATE: 20140626
